FAERS Safety Report 4341572-5 (Version None)
Quarter: 2004Q2

REPORT INFORMATION
  Report Type: 
  Country: None (occurrence: None)
  Receive Date: 20040415
  Receipt Date: 20040406
  Transmission Date: 20050107
  Serious: Yes (Hospitalization)
  Sender: FDA-Public Use
  Company Number: 2004UW04876

PATIENT
  Age: 57 Year
  Sex: Male
  Weight: 95 kg

DRUGS (7)
  1. PROPOFOL [Suspect]
     Indication: ANAESTHESIA
     Dosage: 80 MG QD IV
     Route: 042
     Dates: start: 20040210
  2. WARFARIN SODIUM [Suspect]
  3. ATENOLOL [Suspect]
  4. NI [Suspect]
     Dosage: 300 MG PO
     Route: 048
  5. MIDAZOLAM HCL [Suspect]
  6. PRAMIN [Concomitant]
  7. FUROSEMIDE [Concomitant]

REACTIONS (3)
  - HYPOTENSION [None]
  - POST PROCEDURAL COMPLICATION [None]
  - RENAL FAILURE ACUTE [None]
